FAERS Safety Report 7820737-1 (Version None)
Quarter: 2011Q4

REPORT INFORMATION
  Report Type: 
  Country: None (occurrence: None)
  Receive Date: 20111018
  Receipt Date: 20111013
  Transmission Date: 20120403
  Serious: Yes (Hospitalization)
  Sender: FDA-Public Use
  Company Number: AU-B.I. PHARMACEUTICALS,INC./RIDGEFIELD-2011-AU-01613AU

PATIENT
  Sex: Male

DRUGS (5)
  1. PRADAXA [Suspect]
     Indication: ATRIAL FIBRILLATION
     Dosage: 220 MG
     Dates: start: 20110913
  2. ASPIRIN [Concomitant]
  3. COLGOUT [Concomitant]
  4. RAMIPRIL [Concomitant]
  5. OMEPRAZOLE [Concomitant]

REACTIONS (2)
  - TROPONIN [None]
  - CHEST PAIN [None]
